FAERS Safety Report 11366196 (Version 2)
Quarter: 2015Q3

REPORT INFORMATION
  Report Type: Spontaneous
  Country: FR (occurrence: FR)
  Receive Date: 20150811
  Receipt Date: 20150812
  Transmission Date: 20151125
  Serious: Yes (Congenital Anomaly, Other)
  Sender: FDA-Public Use
  Company Number: FR-ABBVIE-15P-056-1441985-00

PATIENT
  Age: 1 Day
  Sex: Male

DRUGS (4)
  1. GARDENAL [Suspect]
     Active Substance: PHENOBARBITAL
     Indication: MATERNAL EXPOSURE TIMING UNSPECIFIED
     Route: 064
  2. DEPAKINE CHRONO [Suspect]
     Active Substance: VALPROATE SODIUM
     Indication: MATERNAL EXPOSURE TIMING UNSPECIFIED
     Route: 064
  3. URBANYL [Suspect]
     Active Substance: CLOBAZAM
     Indication: MATERNAL EXPOSURE TIMING UNSPECIFIED
     Route: 064
  4. RIVOTRIL [Suspect]
     Active Substance: CLONAZEPAM
     Indication: MATERNAL EXPOSURE TIMING UNSPECIFIED
     Route: 064

REACTIONS (8)
  - Mental retardation [Unknown]
  - Dysmorphism [Recovered/Resolved with Sequelae]
  - Hypertelorism of orbit [Unknown]
  - Foetal exposure during pregnancy [Unknown]
  - Autism spectrum disorder [Recovered/Resolved with Sequelae]
  - Congenital nose malformation [Unknown]
  - Dysmorphism [Unknown]
  - Ear malformation [Unknown]

NARRATIVE: CASE EVENT DATE: 20140618
